FAERS Safety Report 11629314 (Version 2)
Quarter: 2015Q4

REPORT INFORMATION
  Report Type: Spontaneous
  Country: US (occurrence: US)
  Receive Date: 20151014
  Receipt Date: 20151022
  Transmission Date: 20160304
  Serious: No
  Sender: FDA-Public Use
  Company Number: US-ACTELION PHARMACEUTICALS US, INC.-A-NJ2015-125202

PATIENT
  Age: 51 Year
  Sex: Male

DRUGS (2)
  1. VALCHLOR [Suspect]
     Active Substance: MECHLORETHAMINE
     Indication: LANGERHANS^ CELL HISTIOCYTOSIS
     Dosage: UNK UNK, QD
     Route: 061
     Dates: start: 20150901
  2. VITAMIN C [Concomitant]
     Active Substance: ASCORBIC ACID

REACTIONS (3)
  - Application site scab [Recovering/Resolving]
  - Application site erythema [Recovering/Resolving]
  - Application site erosion [Recovering/Resolving]

NARRATIVE: CASE EVENT DATE: 20150928
